FAERS Safety Report 8163710-9 (Version None)
Quarter: 2012Q1

REPORT INFORMATION
  Report Type: 
  Country: None (occurrence: None)
  Receive Date: 20120224
  Receipt Date: 20120124
  Transmission Date: 20120608
  Serious: Yes (Hospitalization)
  Sender: FDA-Public Use
  Company Number: FR-PFIZER INC-K200901386

PATIENT
  Age: 87 Year
  Sex: Female

DRUGS (6)
  1. MACROGOL [Concomitant]
     Indication: CONSTIPATION
     Dosage: UNK
  2. RAMIPRIL [Suspect]
     Dosage: 2.5 MG, 1X/DAY
     Route: 048
     Dates: start: 20090101
  3. RAMIPRIL [Suspect]
     Dosage: 3.75 MG, 1X/DAY
     Route: 048
     Dates: end: 20090101
  4. FLUINDIONE [Concomitant]
     Indication: ARRHYTHMIA
     Dosage: 15 MG, UNK
     Route: 048
  5. ACETAMINOPHEN [Concomitant]
     Indication: ARTHRALGIA
     Dosage: UNK
  6. CORDARONE [Suspect]
     Indication: ARRHYTHMIA
     Dosage: 200 MG, 1X/DAY
     Route: 048
     Dates: end: 20090328

REACTIONS (10)
  - ABDOMINAL PAIN [None]
  - VOMITING [None]
  - HAEMOCONCENTRATION [None]
  - HYPERTHYROIDISM [None]
  - DIARRHOEA [None]
  - RENAL FAILURE ACUTE [None]
  - HYPERKALAEMIA [None]
  - ABDOMINAL DISCOMFORT [None]
  - ABDOMINAL DISTENSION [None]
  - FLATULENCE [None]
